FAERS Safety Report 6092740-6 (Version None)
Quarter: 2009Q1

REPORT INFORMATION
  Report Type: 
  Country: None (occurrence: None)
  Receive Date: 20090225
  Receipt Date: 20090217
  Transmission Date: 20090719
  Serious: Yes (Death, Life-Threatening, Other)
  Sender: FDA-Public Use
  Company Number: JP-ABBOTT-08P-087-0492461-00

PATIENT
  Sex: Female
  Weight: 45.4 kg

DRUGS (13)
  1. HUMIRA [Suspect]
     Indication: RHEUMATOID ARTHRITIS
     Route: 058
     Dates: start: 20081118, end: 20081202
  2. HUMIRA [Suspect]
     Route: 058
     Dates: start: 20081118, end: 20081202
  3. PREDNISOLONE [Suspect]
     Indication: DRUG USE FOR UNKNOWN INDICATION
     Route: 048
     Dates: start: 20081025, end: 20081111
  4. PREDNISOLONE [Suspect]
     Route: 048
     Dates: start: 20081112, end: 20081125
  5. PREDNISOLONE [Suspect]
     Route: 048
     Dates: start: 20081125, end: 20081210
  6. PREDNISOLONE [Concomitant]
     Route: 048
     Dates: start: 20081009
  7. OMEPRAZOLE [Concomitant]
     Indication: PROPHYLAXIS AGAINST GASTROINTESTINAL ULCER
     Route: 048
     Dates: start: 20060617, end: 20081210
  8. OMEPRAZOLE [Concomitant]
     Route: 042
     Dates: start: 20081211, end: 20081227
  9. OMEPRAZOLE [Concomitant]
     Route: 042
     Dates: start: 20081228, end: 20090101
  10. NIFEDIPINE [Concomitant]
     Indication: DRUG USE FOR UNKNOWN INDICATION
     Route: 048
     Dates: start: 20080131, end: 20081210
  11. ALENDRONATE SODIUM [Concomitant]
     Indication: DRUG USE FOR UNKNOWN INDICATION
     Route: 048
     Dates: start: 20070424, end: 20081210
  12. INSULIN ASPART [Concomitant]
     Indication: DIABETES MELLITUS
     Route: 058
     Dates: start: 20081017, end: 20081210
  13. INSULIN ASPART [Concomitant]
     Route: 058
     Dates: start: 20081017

REACTIONS (5)
  - BLOOD PRESSURE ABNORMAL [None]
  - CARDIOVASCULAR INSUFFICIENCY [None]
  - COUGH [None]
  - PNEUMOCYSTIS JIROVECI PNEUMONIA [None]
  - RESPIRATORY FAILURE [None]
